FAERS Safety Report 9201862 (Version 2)
Quarter: 2013Q2

REPORT INFORMATION
  Report Type: Spontaneous
  Country: US (occurrence: None)
  Receive Date: 20130328
  Receipt Date: 20130417
  Transmission Date: 20140414
  Serious: Yes (Disabling, Other)
  Sender: FDA-Public Use
  Company Number: SYM-2013-01651

PATIENT
  Age: 73 Year
  Sex: Female

DRUGS (10)
  1. WELLBUTRIN (BUPROPION HYDROCHLORIDE) (TABLETS) (BUPROPION HYDROCHLORIDE) [Suspect]
     Indication: DEPRESSION
     Route: 048
     Dates: start: 201108
  2. BYSTOLIC [Suspect]
     Indication: EXTRASYSTOLES
     Route: 048
     Dates: start: 2008, end: 20090812
  3. ZOLOFT [Suspect]
     Indication: DEPRESSION
     Route: 048
     Dates: start: 20091120, end: 20091121
  4. SYNTHROID (LEVOTHYROXINE SODIUM) (25 MICROGRAM, TABLETS) (LEVOTHYROXINE SODIUM) [Concomitant]
  5. BUTALBITAL (BUTALBITAL) (BUTABITAL) [Concomitant]
  6. BLUEBERRY EXTRACT (HERBAL PREPARATION) (TABLETS) (NULL) [Concomitant]
  7. GINKGO BILOBA (GINKGO BILOBA) (GINKGO BILOBA) [Concomitant]
  8. MULTIVITAMIN (MULTIVITAMINS) (ERGOCALCIFEROL, ASCORBIC ACID, FOLIC ACID, THIAMINE HYDROCHLORIDE, RETINOL, RIBOFLAVIN, NICOTINAMIDE, PANTHENOL) [Concomitant]
  9. CALCIUM WITH VITAMIN D (CALCIUM W/VITAMIN D NOS) (CALCIUM, VITAMIN D NOS) [Concomitant]
  10. FAMOTIDINE (FAMOTIDINE) (40 MILLIGRAM) (FAMOTIDINE) [Concomitant]

REACTIONS (11)
  - Atrioventricular block complete [None]
  - Drug ineffective [None]
  - Asthenia [None]
  - Tremor [None]
  - Drug interaction [None]
  - Dizziness [None]
  - Palpitations [None]
  - Extrasystoles [None]
  - Condition aggravated [None]
  - Dizziness [None]
  - Product quality issue [None]
